FAERS Safety Report 24229461 (Version 1)
Quarter: 2024Q3

REPORT INFORMATION
  Report Type: Report from Study
  Country: US (occurrence: None)
  Receive Date: 20240820
  Receipt Date: 20240820
  Transmission Date: 20241016
  Serious: Yes (Other)
  Sender: ASTRAZENECA
  Company Number: 2022A418376

PATIENT
  Sex: Male

DRUGS (1)
  1. FASENRA [Suspect]
     Active Substance: BENRALIZUMAB
     Indication: Asthma
     Dosage: 30 MG (1 PEN) SUBCUTANEOUSLY AT WEEK 0 AND WEEK 430MG/ML
     Route: 058

REACTIONS (2)
  - Haemorrhage [Unknown]
  - Skin disorder [Unknown]
